FAERS Safety Report 23070537 (Version 1)
Quarter: 2023Q4

REPORT INFORMATION
  Report Type: Spontaneous
  Country: US (occurrence: US)
  Receive Date: 20231016
  Receipt Date: 20231016
  Transmission Date: 20240110
  Serious: Yes (Other)
  Sender: FDA-Public Use
  Company Number: US-PFIZER INC-PV202300168791

PATIENT
  Age: 76 Year
  Sex: Female

DRUGS (2)
  1. BRAFTOVI [Suspect]
     Active Substance: ENCORAFENIB
     Dosage: 30 DAY SUPPLY FOR 60 QTY
  2. MEKTOVI [Suspect]
     Active Substance: BINIMETINIB
     Dosage: 30 DAY SUPPLY FOR 60 QTY

REACTIONS (3)
  - Neoplasm malignant [Unknown]
  - Neuropathy peripheral [Unknown]
  - Nerve injury [Unknown]
